FAERS Safety Report 21088396 (Version 2)
Quarter: 2022Q3

REPORT INFORMATION
  Report Type: Spontaneous
  Country: FR (occurrence: FR)
  Receive Date: 20220715
  Receipt Date: 20220720
  Transmission Date: 20221027
  Serious: Yes (Hospitalization)
  Sender: FDA-Public Use
  Company Number: None

PATIENT
  Age: 70 Year
  Sex: Female
  Weight: 55 kg

DRUGS (2)
  1. AFINITOR [Suspect]
     Active Substance: EVEROLIMUS
     Indication: Neuroendocrine carcinoma metastatic
     Dosage: 10 MG
     Route: 048
     Dates: start: 202203, end: 20220409
  2. AFINITOR [Suspect]
     Active Substance: EVEROLIMUS
     Dosage: UNK
     Route: 065

REACTIONS (7)
  - Partial seizures [Recovered/Resolved]
  - Diarrhoea [Recovering/Resolving]
  - Flushing [Recovering/Resolving]
  - Mucosal inflammation [Recovering/Resolving]
  - Asthenia [Recovering/Resolving]
  - Stomatitis [Recovering/Resolving]
  - Dyspepsia [Recovering/Resolving]

NARRATIVE: CASE EVENT DATE: 20220301
